FAERS Safety Report 6107737-7 (Version None)
Quarter: 2009Q1

REPORT INFORMATION
  Report Type: 
  Country: None (occurrence: None)
  Receive Date: 20090309
  Receipt Date: 20090306
  Transmission Date: 20090719
  Serious: Yes (Death)
  Sender: FDA-Public Use
  Company Number: A0771120A

PATIENT
  Age: 55 Year
  Sex: Female

DRUGS (8)
  1. HYCAMTIN [Suspect]
     Indication: ENDOMETRIAL CANCER
     Dosage: 8MG PER DAY
     Route: 042
     Dates: start: 20090204, end: 20090204
  2. EMEND [Concomitant]
  3. OXYCODONE HCL [Concomitant]
  4. ZOFRAN [Concomitant]
  5. COMPAZINE [Concomitant]
  6. MS CONTIN [Concomitant]
  7. ARANESP [Concomitant]
  8. KYTRIL [Concomitant]

REACTIONS (1)
  - DEATH [None]
